FAERS Safety Report 9647679 (Version 1)
Quarter: 2013Q4

REPORT INFORMATION
  Report Type: Report from Study
  Country: MX (occurrence: MX)
  Receive Date: 20131028
  Receipt Date: 20131028
  Transmission Date: 20140711
  Serious: Yes (Hospitalization)
  Sender: FDA-Public Use
  Company Number: MX-ROCHE-1292856

PATIENT
  Age: 48 Year
  Sex: Female
  Weight: 87 kg

DRUGS (1)
  1. XELODA [Suspect]
     Indication: BREAST CANCER
     Route: 048
     Dates: start: 2009

REACTIONS (7)
  - Uterine enlargement [Recovered/Resolved]
  - Vaginal haemorrhage [Recovered/Resolved]
  - Lipoma [Recovered/Resolved]
  - Palmar-plantar erythrodysaesthesia syndrome [Recovered/Resolved]
  - Skin hyperpigmentation [Recovered/Resolved]
  - Metastasis [Not Recovered/Not Resolved]
  - Pharyngitis bacterial [Recovering/Resolving]
